FAERS Safety Report 5786885-5 (Version None)
Quarter: 2008Q2

REPORT INFORMATION
  Report Type: 
  Country: None (occurrence: None)
  Receive Date: 20080625
  Receipt Date: 20080616
  Transmission Date: 20081010
  Serious: Yes (Other)
  Sender: FDA-Public Use
  Company Number: US-WYE-H03937308

PATIENT
  Age: 56 Year
  Sex: Female
  Weight: 67.65 kg

DRUGS (7)
  1. EFFEXOR [Suspect]
     Indication: DEPRESSION
     Dosage: UNKNOWN
  2. PERCOCET [Concomitant]
     Dosage: UNKNOWN
     Dates: start: 20070820, end: 20071210
  3. PREMPRO [Concomitant]
     Dosage: UNKNOWN
     Dates: end: 20071210
  4. PROTONIX [Concomitant]
     Dates: start: 20070820, end: 20071210
  5. OXYCONTIN [Concomitant]
     Dates: start: 20070820, end: 20071210
  6. CELEXA [Interacting]
     Indication: DEPRESSION
     Route: 048
     Dates: start: 20070820, end: 20071019
  7. AVAPRO [Concomitant]
     Dates: start: 20070820, end: 20071210

REACTIONS (11)
  - ANGER [None]
  - ANOREXIA [None]
  - ANXIETY [None]
  - DRUG INTERACTION [None]
  - HEADACHE [None]
  - HOMICIDAL IDEATION [None]
  - MALAISE [None]
  - PALPITATIONS [None]
  - SUICIDAL IDEATION [None]
  - TEARFULNESS [None]
  - TREMOR [None]
